FAERS Safety Report 11220593 (Version 1)
Quarter: 2015Q2

REPORT INFORMATION
  Report Type: Spontaneous
  Country: US (occurrence: None)
  Receive Date: 20150625
  Receipt Date: 20150625
  Transmission Date: 20150821
  Serious: No
  Sender: FDA-Public Use
  Company Number: None

PATIENT
  Age: 23 Year
  Sex: Female
  Weight: 136.08 kg

DRUGS (3)
  1. FERROUS SULFATE (IRON) [Concomitant]
  2. VITAMIN C [Concomitant]
     Active Substance: ASCORBIC ACID
  3. AMITIZA [Suspect]
     Active Substance: LUBIPROSTONE
     Indication: CONSTIPATION
     Route: 048
     Dates: start: 20150423, end: 20150507

REACTIONS (5)
  - Dysuria [None]
  - Pollakiuria [None]
  - Micturition urgency [None]
  - Urinary incontinence [None]
  - Blood urine present [None]

NARRATIVE: CASE EVENT DATE: 20150423
